FAERS Safety Report 6017689-6 (Version None)
Quarter: 2008Q4

REPORT INFORMATION
  Report Type: 
  Country: None (occurrence: None)
  Receive Date: 20081223
  Receipt Date: 20081217
  Transmission Date: 20090506
  Serious: Yes (Life-Threatening)
  Sender: FDA-Public Use
  Company Number: CA-ROCHE-603778

PATIENT
  Sex: Female

DRUGS (2)
  1. PEG-INTERFERON ALFA 2A (RO 25-8310) [Suspect]
     Indication: HEPATITIS C
     Dosage: STOP DATE REPORTED AS 2008
     Route: 058
     Dates: start: 20080825
  2. RIBAVIRIN [Suspect]
     Indication: HEPATITIS C
     Dosage: STOP DATE: 2008
     Route: 048
     Dates: start: 20080825

REACTIONS (2)
  - BRAIN INJURY [None]
  - CARDIAC ARREST [None]
